FAERS Safety Report 9635724 (Version 4)
Quarter: 2013Q4

REPORT INFORMATION
  Report Type: Spontaneous
  Country: JP (occurrence: JP)
  Receive Date: 20131021
  Receipt Date: 20131223
  Transmission Date: 20140711
  Serious: Yes (Hospitalization)
  Sender: FDA-Public Use
  Company Number: JP-GLAXOSMITHKLINE-B0932320A

PATIENT
  Age: 63 Year
  Sex: Female
  Weight: 64 kg

DRUGS (9)
  1. HYCAMTIN [Suspect]
     Indication: OVARIAN CANCER
     Dosage: 2.2MGM2 PER DAY
     Route: 042
     Dates: start: 20130920, end: 20130924
  2. DEXART [Concomitant]
     Route: 042
     Dates: start: 20130920, end: 20130924
  3. GASUISAN [Concomitant]
     Dosage: 40MG PER DAY
     Route: 048
  4. REBAMIPIDE [Concomitant]
     Dosage: 450MG PER DAY
     Route: 048
  5. MAGLAX [Concomitant]
     Dosage: 990MG PER DAY
     Route: 048
  6. SODIUM PICOSULFATE [Concomitant]
     Route: 048
  7. CELECOX [Concomitant]
     Dosage: 300MG PER DAY
     Route: 048
  8. WARFARIN [Concomitant]
     Dosage: 4MG PER DAY
     Route: 048
  9. PILOCARPINE HYDROCHLORIDE [Concomitant]
     Route: 048

REACTIONS (1)
  - Bone marrow failure [Recovered/Resolved]
